FAERS Safety Report 6992552-2 (Version None)
Quarter: 2010Q3

REPORT INFORMATION
  Report Type: 
  Country: None (occurrence: None)
  Receive Date: 20100915
  Receipt Date: 20100901
  Transmission Date: 20110219
  Serious: Yes (Death)
  Sender: FDA-Public Use
  Company Number: 010593

PATIENT
  Age: 82 Year
  Sex: Male

DRUGS (3)
  1. PLETAL [Suspect]
     Dosage: ORAL
     Route: 048
     Dates: start: 20090101
  2. PLAVIX [Concomitant]
  3. PARIET (RABEPRAZOLE SODIUM) TABLET [Concomitant]

REACTIONS (4)
  - GASTRIC HAEMORRHAGE [None]
  - PNEUMONIA [None]
  - RESPIRATORY DISORDER [None]
  - TUMOUR HAEMORRHAGE [None]
